FAERS Safety Report 14634613 (Version 5)
Quarter: 2019Q3

REPORT INFORMATION
  Report Type: Spontaneous
  Country: US (occurrence: US)
  Receive Date: 20180314
  Receipt Date: 20190816
  Transmission Date: 20191004
  Serious: No
  Sender: FDA-Public Use
  Company Number: US-PFIZER INC-2018072998

PATIENT
  Age: 44 Year
  Sex: Female
  Weight: 66 kg

DRUGS (3)
  1. TRAMADOL. [Concomitant]
     Active Substance: TRAMADOL
     Indication: PAIN
     Dosage: 50 MG, AS NEEDED (TWICE DAILY AND UP TO 3 TIMES AS NEEDED)
     Route: 048
     Dates: start: 2017
  2. LYRICA [Suspect]
     Active Substance: PREGABALIN
     Indication: NEURALGIA
     Dosage: UNK
  3. LYRICA [Suspect]
     Active Substance: PREGABALIN
     Indication: MULTIPLE SCLEROSIS
     Dosage: 225 MG, 2X/DAY (ONE CAPSULE IN THE MORNING AND ONE CAPSULE IN THE AFTERNOON)
     Route: 048
     Dates: start: 2018

REACTIONS (7)
  - Anxiety [Unknown]
  - Nausea [Unknown]
  - Off label use [Unknown]
  - Malaise [Unknown]
  - Drug effective for unapproved indication [Unknown]
  - Therapeutic product effect decreased [Unknown]
  - Gastroenteritis viral [Not Recovered/Not Resolved]
